FAERS Safety Report 15097142 (Version 3)
Quarter: 2018Q3

REPORT INFORMATION
  Report Type: Report from Study
  Country: US (occurrence: US)
  Receive Date: 20180702
  Receipt Date: 20180813
  Transmission Date: 20181010
  Serious: Yes (Other)
  Sender: FDA-Public Use
  Company Number: US-GLAXOSMITHKLINE-US2018GSK115475

PATIENT
  Age: 74 Year
  Sex: Male
  Weight: 66.32 kg

DRUGS (12)
  1. ENBREL [Suspect]
     Active Substance: ETANERCEPT
     Indication: PSORIASIS
     Dosage: 50 MG, WE
  2. PREDNISONE. [Suspect]
     Active Substance: PREDNISONE
     Indication: PRODUCT USED FOR UNKNOWN INDICATION
     Dosage: 60 UNK, UNK
  3. PREDNISONE. [Suspect]
     Active Substance: PREDNISONE
     Dosage: 40 MG, UNK
  4. CETIRIZINE [Concomitant]
     Active Substance: CETIRIZINE HYDROCHLORIDE
     Dosage: UNK
  5. LIDOCAINE. [Concomitant]
     Active Substance: LIDOCAINE
     Dosage: UNK
  6. DOCUSATE SODIUM. [Concomitant]
     Active Substance: DOCUSATE SODIUM
     Dosage: UNK
  7. BUPROPION HYDROCHLORIDE. [Suspect]
     Active Substance: BUPROPION HYDROCHLORIDE
     Indication: PRODUCT USED FOR UNKNOWN INDICATION
     Dosage: 150 MG, BID
  8. PREDNISONE. [Suspect]
     Active Substance: PREDNISONE
     Dosage: 20 MG, QOD
  9. BUPROPION HYDROCHLORIDE. [Suspect]
     Active Substance: BUPROPION HYDROCHLORIDE
     Dosage: 100 MG, BID
  10. NICOTINE. [Concomitant]
     Active Substance: NICOTINE
  11. OMEPRAZOLE. [Concomitant]
     Active Substance: OMEPRAZOLE
     Dosage: UNK
  12. STERAPRED DS [Concomitant]
     Dosage: UNK

REACTIONS (21)
  - Asthenia [Unknown]
  - Insomnia [Unknown]
  - Balance disorder [Unknown]
  - Energy increased [Unknown]
  - Condition aggravated [Recovered/Resolved]
  - Nicotine dependence [Unknown]
  - Tremor [Unknown]
  - Hyperhidrosis [Unknown]
  - Aggression [Unknown]
  - Non-small cell lung cancer [Unknown]
  - Cough [Unknown]
  - Lung neoplasm malignant [Unknown]
  - Viral upper respiratory tract infection [Unknown]
  - Adjustment disorder with mixed anxiety and depressed mood [Unknown]
  - Constipation [Unknown]
  - Dyspepsia [Recovered/Resolved]
  - Anger [Unknown]
  - Laryngitis [Unknown]
  - Mood altered [Unknown]
  - Productive cough [Unknown]
  - Gastrooesophageal reflux disease [Recovered/Resolved]

NARRATIVE: CASE EVENT DATE: 2018
